FAERS Safety Report 24816857 (Version 3)
Quarter: 2025Q1

REPORT INFORMATION
  Report Type: Report from Study
  Country: GB (occurrence: GB)
  Receive Date: 20250107
  Receipt Date: 20250206
  Transmission Date: 20250409
  Serious: No
  Sender: JOHNSON AND JOHNSON
  Company Number: GB-JNJFOC-20241252419

PATIENT
  Sex: Female

DRUGS (1)
  1. SIMPONI [Suspect]
     Active Substance: GOLIMUMAB
     Indication: Behcet^s syndrome
     Dosage: STRENGTH:  50.00 MG / 0.50 ML
     Route: 058

REACTIONS (2)
  - Needle issue [Unknown]
  - Off label use [Unknown]
